FAERS Safety Report 23384859 (Version 3)
Quarter: 2024Q2

REPORT INFORMATION
  Report Type: Report from Study
  Country: US (occurrence: US)
  Receive Date: 20240109
  Receipt Date: 20240426
  Transmission Date: 20240716
  Serious: Yes (Hospitalization)
  Sender: FDA-Public Use
  Company Number: US-ABBVIE-5575231

PATIENT
  Sex: Female

DRUGS (2)
  1. SKYRIZI [Suspect]
     Active Substance: RISANKIZUMAB-RZAA
     Indication: Psoriasis
     Route: 058
     Dates: start: 20231011
  2. SKYRIZI [Suspect]
     Active Substance: RISANKIZUMAB-RZAA
     Dosage: LAST ADMIN DATE WAS 2023
     Route: 058
     Dates: start: 20230510

REACTIONS (1)
  - Influenza [Unknown]

NARRATIVE: CASE EVENT DATE: 20230101
